FAERS Safety Report 11582365 (Version 1)
Quarter: 2015Q3

REPORT INFORMATION
  Report Type: Spontaneous
  Country: US (occurrence: None)
  Receive Date: 20150930
  Receipt Date: 20150930
  Transmission Date: 20151125
  Serious: Yes (Other)
  Sender: FDA-Public Use
  Company Number: None

PATIENT
  Age: 65 Year
  Sex: Male

DRUGS (3)
  1. CAPACITABINE [Suspect]
     Active Substance: CAPECITABINE
     Indication: NEOPLASM MALIGNANT
     Dosage: 3 BID FOR 14 CONSECUTIVE DAYS ONCE Q3W PO?
     Route: 048
     Dates: start: 20150801
  2. CAPACITABINE [Suspect]
     Active Substance: CAPECITABINE
     Indication: NEOPLASM MALIGNANT
     Dosage: 2 BID FOR 14 CONSECUTIVE DAYS ONCE Q3W PO?
     Route: 048
     Dates: start: 20150801
  3. LISINOPRIL AND HYDROCHLOROTHIAZIDE [Concomitant]
     Active Substance: HYDROCHLOROTHIAZIDE\LISINOPRIL

REACTIONS (1)
  - Hypertension [None]

NARRATIVE: CASE EVENT DATE: 20150928
